FAERS Safety Report 23159837 (Version 2)
Quarter: 2024Q1

REPORT INFORMATION
  Report Type: Spontaneous
  Country: JP (occurrence: JP)
  Receive Date: 20231108
  Receipt Date: 20240202
  Transmission Date: 20240410
  Serious: Yes (Death, Hospitalization, Other)
  Sender: FDA-Public Use
  Company Number: JP-JAZZ PHARMACEUTICALS-2023-JP-022484

PATIENT

DRUGS (4)
  1. DEFITELIO [Suspect]
     Active Substance: DEFIBROTIDE SODIUM
     Indication: Venoocclusive liver disease
     Dosage: 1450 MILLIGRAM 1 1450 MG (362.5 MG/6 HOURS)
     Route: 042
     Dates: start: 20231010
  2. DEFITELIO [Suspect]
     Active Substance: DEFIBROTIDE SODIUM
     Indication: Venoocclusive liver disease
  3. TACROLIMUS [Concomitant]
     Active Substance: TACROLIMUS
     Indication: Graft versus host disease
  4. RUXOLITINIB [Concomitant]
     Active Substance: RUXOLITINIB
     Indication: Graft versus host disease in liver
     Dosage: UNK
     Dates: start: 20231020

REACTIONS (4)
  - Pneumonia [Fatal]
  - Venoocclusive liver disease [Not Recovered/Not Resolved]
  - Venoocclusive liver disease [Not Recovered/Not Resolved]
  - Therapeutic product effect incomplete [Unknown]

NARRATIVE: CASE EVENT DATE: 20231016
